FAERS Safety Report 6023343-7 (Version None)
Quarter: 2008Q4

REPORT INFORMATION
  Report Type: 
  Country: None (occurrence: None)
  Receive Date: 20081230
  Receipt Date: 20081222
  Transmission Date: 20090506
  Serious: Yes (Hospitalization, Other)
  Sender: FDA-Public Use
  Company Number: US-ELI_LILLY_AND_COMPANY-US200809001564

PATIENT
  Sex: Female
  Weight: 68.027 kg

DRUGS (5)
  1. FORTEO [Suspect]
     Indication: OSTEOPOROSIS
     Dosage: UNK, UNK
     Dates: start: 20080901
  2. FORTEO [Suspect]
     Dosage: UNK, UNK
     Dates: end: 20081201
  3. LISINOPRIL [Concomitant]
  4. AMLODIPINE [Concomitant]
  5. CRESTOR [Concomitant]

REACTIONS (7)
  - ARTHRALGIA [None]
  - BONE PAIN [None]
  - HEADACHE [None]
  - HYPOAESTHESIA [None]
  - HYPOAESTHESIA FACIAL [None]
  - MYALGIA [None]
  - NECK PAIN [None]
